FAERS Safety Report 7415308-5 (Version None)
Quarter: 2011Q2

REPORT INFORMATION
  Report Type: 
  Country: None (occurrence: None)
  Receive Date: 20110406
  Receipt Date: 20110324
  Transmission Date: 20111010
  Serious: Yes (Hospitalization, Other)
  Sender: FDA-Public Use
  Company Number: JPI-P-009302

PATIENT
  Age: 54 Year
  Sex: Female
  Weight: 102.0593 kg

DRUGS (28)
  1. TRAMADOL [Suspect]
     Indication: POST-TRAUMATIC PAIN
     Dates: start: 20100901
  2. PROBIOTIC SUPPLEMENT [Concomitant]
  3. DOXYCYCLINE [Concomitant]
  4. XYREM [Suspect]
  5. POLYETHYLENE GLYCOL [Concomitant]
  6. MONTELUKAST SODIUM [Concomitant]
  7. CLINDAMYCIN [Concomitant]
  8. ACETYLSALICYLIC ACID SRT [Concomitant]
  9. BENZOYL PEROXIDE [Concomitant]
  10. LANSOPRAZOLE [Concomitant]
  11. FLUTICASONE PROPIONATE [Concomitant]
  12. ALBUTEROL SULFATE [Concomitant]
  13. ACETIC ACID [Concomitant]
  14. DULOXETINE HYDROCHLORIDE [Concomitant]
  15. XYREM [Suspect]
     Indication: NARCOLEPSY
     Dosage: SEE IMAGE
     Route: 048
     Dates: start: 20110323
  16. XYREM [Suspect]
     Indication: SLEEP APNOEA SYNDROME
     Dosage: SEE IMAGE
     Route: 048
     Dates: start: 20110323
  17. XYREM [Suspect]
     Indication: SLEEP DISORDER
     Dosage: SEE IMAGE
     Route: 048
     Dates: start: 20110323
  18. XYREM [Suspect]
     Indication: NARCOLEPSY
     Dosage: SEE IMAGE
     Route: 048
     Dates: start: 20041004
  19. XYREM [Suspect]
     Indication: SLEEP APNOEA SYNDROME
     Dosage: SEE IMAGE
     Route: 048
     Dates: start: 20041004
  20. XYREM [Suspect]
     Indication: SLEEP DISORDER
     Dosage: SEE IMAGE
     Route: 048
     Dates: start: 20041004
  21. XYREM [Suspect]
     Indication: NARCOLEPSY
     Dosage: SEE IMAGE
     Route: 048
     Dates: start: 20090423
  22. XYREM [Suspect]
     Indication: SLEEP APNOEA SYNDROME
     Dosage: SEE IMAGE
     Route: 048
     Dates: start: 20090423
  23. XYREM [Suspect]
     Indication: SLEEP DISORDER
     Dosage: SEE IMAGE
     Route: 048
     Dates: start: 20090423
  24. PROBIOTIC [Concomitant]
  25. TOPIRAMATE [Concomitant]
  26. AZELASTINE HCL [Concomitant]
  27. LORATADINE [Concomitant]
  28. CLINDAMYCIN [Concomitant]

REACTIONS (22)
  - POLYP [None]
  - DEPRESSION [None]
  - INTESTINAL OBSTRUCTION [None]
  - SPINAL OSTEOARTHRITIS [None]
  - TENDON INJURY [None]
  - VITAMIN D DECREASED [None]
  - ABDOMINAL PAIN UPPER [None]
  - NIGHTMARE [None]
  - UTERINE DILATION AND CURETTAGE [None]
  - BACK PAIN [None]
  - COLONIC POLYP [None]
  - DIVERTICULITIS [None]
  - OSTEOARTHRITIS [None]
  - GASTRIC PERFORATION [None]
  - MIGRAINE WITH AURA [None]
  - INSOMNIA [None]
  - MEMORY IMPAIRMENT [None]
  - ARTHRALGIA [None]
  - BLINDNESS TRANSIENT [None]
  - SCAR [None]
  - MUSCLE SPASMS [None]
  - ROAD TRAFFIC ACCIDENT [None]
